FAERS Safety Report 8349774-8 (Version None)
Quarter: 2012Q2

REPORT INFORMATION
  Report Type: 
  Country: None (occurrence: None)
  Receive Date: 20120510
  Receipt Date: 20120508
  Transmission Date: 20120825
  Serious: Yes (Death, Hospitalization, Other)
  Sender: FDA-Public Use
  Company Number: DE-B.I. PHARMACEUTICALS,INC./RIDGEFIELD-2012-DE-00859DE

PATIENT
  Sex: Female
  Weight: 85 kg

DRUGS (6)
  1. RAMILICH COMP [Concomitant]
     Indication: HYPERTENSION
     Dosage: 1 ANZ
  2. LYRICA [Concomitant]
     Indication: AMPUTATION STUMP PAIN
     Dosage: 50 MG
     Dates: start: 20111001
  3. PRADAXA [Suspect]
  4. OXYCODONE HCL [Concomitant]
     Indication: PAIN
     Dosage: 10 MG
  5. PRADAXA [Suspect]
     Indication: ATRIAL FIBRILLATION
     Dosage: 300 MG
     Dates: start: 20111201, end: 20120104
  6. PRADAXA [Suspect]
     Indication: EMBOLISM ARTERIAL

REACTIONS (8)
  - DEPRESSED LEVEL OF CONSCIOUSNESS [None]
  - ANAL HAEMORRHAGE [None]
  - INTESTINAL HAEMORRHAGE [None]
  - RENAL FAILURE ACUTE [None]
  - HAEMATEMESIS [None]
  - HAEMATOCHEZIA [None]
  - VAGINAL HAEMORRHAGE [None]
  - SOMNOLENCE [None]
